FAERS Safety Report 5805191-3 (Version None)
Quarter: 2008Q3

REPORT INFORMATION
  Report Type: 
  Country: None (occurrence: None)
  Receive Date: 20080707
  Receipt Date: 20080630
  Transmission Date: 20090109
  Serious: Yes (Hospitalization, Other)
  Sender: FDA-Public Use
  Company Number: 2008AL004094

PATIENT
  Age: 64 Year
  Sex: Female
  Weight: 72.5755 kg

DRUGS (1)
  1. DIGOXIN [Suspect]
     Indication: ARRHYTHMIA
     Dosage: 0.125MG DAILY PO
     Route: 048
     Dates: start: 20000411, end: 20080411

REACTIONS (8)
  - CARDIAC DISORDER [None]
  - DIZZINESS [None]
  - DYSPNOEA [None]
  - FLUID RETENTION [None]
  - HAEMORRHAGE [None]
  - HEART RATE DECREASED [None]
  - HYPOTENSION [None]
  - VOMITING [None]
